FAERS Safety Report 8532459-2 (Version None)
Quarter: 2012Q3

REPORT INFORMATION
  Report Type: 
  Country: None (occurrence: None)
  Receive Date: 20120716
  Receipt Date: 20120716
  Transmission Date: 20120928
  Serious: Yes (Other)
  Sender: FDA-Public Use
  Company Number: None

PATIENT
  Age: 52 Year
  Sex: Male
  Weight: 86.1834 kg

DRUGS (1)
  1. RAPAFLO [Suspect]
     Dosage: 8 MG 1 A DAY PO
     Route: 048
     Dates: start: 20120710, end: 20120714

REACTIONS (1)
  - ERECTILE DYSFUNCTION [None]
